FAERS Safety Report 21763317 (Version 4)
Quarter: 2023Q1

REPORT INFORMATION
  Report Type: Spontaneous
  Country: DE (occurrence: DE)
  Receive Date: 20221221
  Receipt Date: 20230302
  Transmission Date: 20230417
  Serious: Yes (Other)
  Sender: FDA-Public Use
  Company Number: DE-DAIICHI SANKYO EUROPE GMBH-DSE-2022-145098

PATIENT
  Age: 66 Year
  Sex: Female
  Weight: 64 kg

DRUGS (8)
  1. BEMPEDOIC ACID\EZETIMIBE [Suspect]
     Active Substance: BEMPEDOIC ACID\EZETIMIBE
     Indication: Type IIa hyperlipidaemia
     Dosage: 1 DF, QD (180/10 MG)
     Route: 048
     Dates: start: 202206
  2. BEMPEDOIC ACID\EZETIMIBE [Suspect]
     Active Substance: BEMPEDOIC ACID\EZETIMIBE
     Dosage: UNK (TOOK FOR 3 DAYS)
     Route: 065
  3. BEMPEDOIC ACID\EZETIMIBE [Suspect]
     Active Substance: BEMPEDOIC ACID\EZETIMIBE
     Dosage: UNK (INTAKE OVER A PERIOD OF 2 DAYS AND A ONE-DAY PAUSE)
     Route: 065
     Dates: end: 20221110
  4. REPATHA [Suspect]
     Active Substance: EVOLOCUMAB
     Indication: Hypercholesterolaemia
     Dosage: UNK
     Route: 065
     Dates: start: 202206
  5. CLOPIDOGREL [Concomitant]
     Active Substance: CLOPIDOGREL BISULFATE
     Indication: Anticoagulant therapy
     Dosage: UNK
     Route: 048
     Dates: start: 2017
  6. HERBALS\TURMERIC [Concomitant]
     Active Substance: HERBALS\TURMERIC
     Indication: Musculoskeletal discomfort
     Dosage: UNK
     Route: 048
     Dates: start: 2022
  7. FRANKINCENSE [Concomitant]
     Indication: Musculoskeletal discomfort
     Dosage: UNK
     Route: 048
     Dates: start: 2022
  8. BEMPEDOIC ACID [Concomitant]
     Active Substance: BEMPEDOIC ACID
     Indication: Hypercholesterolaemia
     Dosage: UNK
     Route: 065
     Dates: start: 202212

REACTIONS (12)
  - Psoriatic arthropathy [Recovering/Resolving]
  - Coronavirus infection [Recovering/Resolving]
  - Arthropathy [Recovered/Resolved]
  - Loss of personal independence in daily activities [Unknown]
  - Arthritis [Unknown]
  - Headache [Recovering/Resolving]
  - Peripheral swelling [Recovering/Resolving]
  - Arthralgia [Recovered/Resolved]
  - Arthralgia [Recovered/Resolved]
  - Pain in extremity [Recovered/Resolved]
  - Pain in extremity [Recovered/Resolved]
  - Inappropriate schedule of product administration [Recovered/Resolved]

NARRATIVE: CASE EVENT DATE: 20220701
